FAERS Safety Report 16181119 (Version 7)
Quarter: 2021Q1

REPORT INFORMATION
  Report Type: Spontaneous
  Country: US (occurrence: US)
  Receive Date: 20190410
  Receipt Date: 20210302
  Transmission Date: 20210419
  Serious: Yes (Other)
  Sender: FDA-Public Use
  Company Number: US-ASTRAZENECA-2018SF22609

PATIENT
  Sex: Female
  Weight: 139.3 kg

DRUGS (103)
  1. NEXIUM [Suspect]
     Active Substance: ESOMEPRAZOLE MAGNESIUM
     Indication: GASTROOESOPHAGEAL REFLUX DISEASE
     Route: 048
     Dates: start: 200408, end: 201312
  2. NEXIUM [Suspect]
     Active Substance: ESOMEPRAZOLE MAGNESIUM
     Indication: GASTROOESOPHAGEAL REFLUX DISEASE
     Route: 048
     Dates: start: 20040803, end: 20101226
  3. NEXIUM [Suspect]
     Active Substance: ESOMEPRAZOLE MAGNESIUM
     Indication: GASTROOESOPHAGEAL REFLUX DISEASE
     Dosage: 40.0MG UNKNOWN
     Route: 048
     Dates: start: 20020430
  4. PREVACID [Suspect]
     Active Substance: LANSOPRAZOLE
     Indication: GASTROOESOPHAGEAL REFLUX DISEASE
     Route: 065
     Dates: start: 2000, end: 2016
  5. OXYCONTIN [Concomitant]
     Active Substance: OXYCODONE HYDROCHLORIDE
  6. CIPROFLOXACIN. [Concomitant]
     Active Substance: CIPROFLOXACIN
     Indication: DRUG HYPERSENSITIVITY
     Dates: start: 200907, end: 201605
  7. TORSEMIDE. [Concomitant]
     Active Substance: TORSEMIDE
     Indication: DIURETIC THERAPY
     Dates: start: 201709, end: 201711
  8. ALDACTONE [Concomitant]
     Active Substance: SPIRONOLACTONE
  9. TROPACINE. [Concomitant]
     Active Substance: TROPACINE
  10. NIZATIDINE. [Concomitant]
     Active Substance: NIZATIDINE
  11. ALBUTEROL. [Concomitant]
     Active Substance: ALBUTEROL
  12. BACTROBAN [Concomitant]
     Active Substance: MUPIROCIN\MUPIROCIN CALCIUM
  13. ONDANSETRON HYDROCHLORIDE. [Concomitant]
     Active Substance: ONDANSETRON HYDROCHLORIDE
  14. VIGAMOX [Concomitant]
     Active Substance: MOXIFLOXACIN HYDROCHLORIDE
  15. LEVOTHYROXINE SODIUM. [Concomitant]
     Active Substance: LEVOTHYROXINE SODIUM
  16. SODIUM BICARBONATE. [Concomitant]
     Active Substance: SODIUM BICARBONATE
  17. AMOXICILLIN. [Concomitant]
     Active Substance: AMOXICILLIN
     Indication: ANTIBIOTIC LEVEL
     Dates: start: 201008, end: 201204
  18. IRON [Concomitant]
     Active Substance: IRON
  19. TUMS [Concomitant]
     Active Substance: CALCIUM CARBONATE
  20. SOAP [Concomitant]
     Active Substance: SOAP
  21. OMNIPAQUE [Concomitant]
     Active Substance: IOHEXOL
  22. AMITIZA [Concomitant]
     Active Substance: LUBIPROSTONE
  23. METRONIDAZOLE. [Concomitant]
     Active Substance: METRONIDAZOLE
  24. ZOSTAVAX [Concomitant]
     Active Substance: VARICELLA-ZOSTER VIRUS STRAIN OKA/MERCK LIVE ANTIGEN
  25. PRILOSEC OTC [Suspect]
     Active Substance: OMEPRAZOLE MAGNESIUM
     Indication: GASTROOESOPHAGEAL REFLUX DISEASE
     Route: 048
     Dates: start: 200408, end: 201312
  26. PREVACID [Suspect]
     Active Substance: LANSOPRAZOLE
     Indication: GASTROOESOPHAGEAL REFLUX DISEASE
     Route: 065
     Dates: start: 200408, end: 201312
  27. MICARDIS [Concomitant]
     Active Substance: TELMISARTAN
  28. DIAMOX SEQUELS [Concomitant]
     Active Substance: ACETAZOLAMIDE
     Indication: ANTIBIOTIC LEVEL
     Dates: start: 2017, end: 2018
  29. LOSARTAN. [Concomitant]
     Active Substance: LOSARTAN
     Indication: HYPERTENSION
     Dates: start: 201608
  30. LISINOPRIL. [Concomitant]
     Active Substance: LISINOPRIL
     Indication: HYPERTENSION
     Dates: start: 200812, end: 201812
  31. RANITIDINE. [Concomitant]
     Active Substance: RANITIDINE
  32. MAALOX ANTACID [Concomitant]
     Active Substance: ALUMINUM HYDROXIDE\DIMETHICONE\MAGNESIUM HYDROXIDE
  33. BISACODYL. [Concomitant]
     Active Substance: BISACODYL
  34. ICAPS [Concomitant]
     Active Substance: MINERALS\VITAMINS
  35. METANX [Concomitant]
     Active Substance: LEVOMEFOLATE CALCIUM\METHYLCOBALAMIN\PYRIDOXAL PHOSPHATE ANHYDROUS
  36. NEXIUM [Suspect]
     Active Substance: ESOMEPRAZOLE MAGNESIUM
     Indication: GASTROOESOPHAGEAL REFLUX DISEASE
     Route: 048
     Dates: start: 200204, end: 200802
  37. PRILOSEC OTC [Suspect]
     Active Substance: OMEPRAZOLE MAGNESIUM
     Indication: GASTROOESOPHAGEAL REFLUX DISEASE
     Route: 048
     Dates: start: 200803, end: 201412
  38. BUMEX [Concomitant]
     Active Substance: BUMETANIDE
     Indication: DIURETIC THERAPY
     Dates: start: 2012
  39. DOXYCYCLINE. [Concomitant]
     Active Substance: DOXYCYCLINE
     Indication: ANTIBIOTIC LEVEL
     Dates: start: 201111, end: 201707
  40. HYDRALAZINE [Concomitant]
     Active Substance: HYDRALAZINE HYDROCHLORIDE
     Indication: HYPERTENSION
     Dates: start: 201608
  41. PEPCID [Concomitant]
     Active Substance: FAMOTIDINE
  42. IPRATROPIUM [Concomitant]
     Active Substance: IPRATROPIUM
  43. NITROGLYCERIN. [Concomitant]
     Active Substance: NITROGLYCERIN
  44. NUBAIN [Concomitant]
     Active Substance: NALBUPHINE HYDROCHLORIDE
  45. AQUAPHOR [Concomitant]
     Active Substance: PETROLATUM
  46. BIPHEDRINE [Concomitant]
  47. TRAZODONE HYDROCHLORIDE. [Concomitant]
     Active Substance: TRAZODONE HYDROCHLORIDE
  48. PROMETHAZINE HYDROCHLORIDE. [Concomitant]
     Active Substance: PROMETHAZINE HYDROCHLORIDE
  49. CLONIDINE HYDROCHLORIDE. [Concomitant]
     Active Substance: CLONIDINE HYDROCHLORIDE
  50. DESONIDE. [Concomitant]
     Active Substance: DESONIDE
  51. COUMADIN [Concomitant]
     Active Substance: WARFARIN SODIUM
  52. LOVENOX [Concomitant]
     Active Substance: ENOXAPARIN SODIUM
  53. ESTRACE [Concomitant]
     Active Substance: ESTRADIOL
  54. MIRTAZAPINE. [Concomitant]
     Active Substance: MIRTAZAPINE
  55. NEXIUM [Suspect]
     Active Substance: ESOMEPRAZOLE MAGNESIUM
     Indication: GASTROOESOPHAGEAL REFLUX DISEASE
     Route: 048
     Dates: start: 20121002
  56. PRILOSEC [Suspect]
     Active Substance: OMEPRAZOLE MAGNESIUM
     Indication: GASTROOESOPHAGEAL REFLUX DISEASE
     Route: 048
     Dates: start: 200408, end: 201312
  57. FISH OIL [Concomitant]
     Active Substance: FISH OIL
  58. COLACE [Concomitant]
     Active Substance: DOCUSATE SODIUM
  59. STEROID [Concomitant]
     Active Substance: UNSPECIFIED INGREDIENT
  60. DIPHENOXYLATE?ATROPINE [Concomitant]
     Active Substance: ATROPINE\DIPHENOXYLATE
  61. HYDROXYZINE HYDROCHLORIDE. [Concomitant]
     Active Substance: HYDROXYZINE HYDROCHLORIDE
  62. ABILIFY [Concomitant]
     Active Substance: ARIPIPRAZOLE
  63. NASONEX [Concomitant]
     Active Substance: MOMETASONE FUROATE
  64. AMMONIUM LACTATE. [Concomitant]
     Active Substance: AMMONIUM LACTATE
  65. PRILOSEC [Suspect]
     Active Substance: OMEPRAZOLE MAGNESIUM
     Indication: GASTROOESOPHAGEAL REFLUX DISEASE
     Dosage: GENERIC
     Route: 065
     Dates: start: 201604, end: 201605
  66. PROTONIX [Suspect]
     Active Substance: PANTOPRAZOLE SODIUM
     Indication: GASTROOESOPHAGEAL REFLUX DISEASE
     Dosage: 40.0MG UNKNOWN
     Route: 065
     Dates: start: 20181014
  67. ACTOS [Concomitant]
     Active Substance: PIOGLITAZONE HYDROCHLORIDE
  68. TAGAMET [Concomitant]
     Active Substance: CIMETIDINE
  69. HUMALOG [Concomitant]
     Active Substance: INSULIN LISPRO
  70. LEVEMIR [Concomitant]
     Active Substance: INSULIN DETEMIR
  71. SULFAMETHOXAZOLE?TRIMETHOPRIM [Concomitant]
     Active Substance: SULFAMETHOXAZOLE\TRIMETHOPRIM
  72. ERYTHROMYCIN. [Concomitant]
     Active Substance: ERYTHROMYCIN
  73. CLOBETASOL PROPIONATE. [Concomitant]
     Active Substance: CLOBETASOL PROPIONATE
  74. FROVA [Concomitant]
     Active Substance: FROVATRIPTAN SUCCINATE
  75. PRILOSEC [Suspect]
     Active Substance: OMEPRAZOLE MAGNESIUM
     Indication: GASTROOESOPHAGEAL REFLUX DISEASE
     Route: 048
     Dates: start: 2000, end: 2016
  76. PRILOSEC OTC [Suspect]
     Active Substance: OMEPRAZOLE MAGNESIUM
     Indication: GASTROOESOPHAGEAL REFLUX DISEASE
     Route: 048
     Dates: start: 20060419, end: 20131218
  77. GLIMEPIRIDE. [Concomitant]
     Active Substance: GLIMEPIRIDE
  78. METFORMIN [Concomitant]
     Active Substance: METFORMIN HYDROCHLORIDE
     Indication: DIABETES MELLITUS
  79. CARISOPRODOL. [Concomitant]
     Active Substance: CARISOPRODOL
  80. AZITHROMYCIN ANHYDROUS. [Concomitant]
     Active Substance: AZITHROMYCIN ANHYDROUS
     Indication: ANTIBIOTIC LEVEL
     Dates: start: 200811, end: 201405
  81. FUROSEMIDE. [Concomitant]
     Active Substance: FUROSEMIDE
     Indication: DIURETIC THERAPY
     Dates: start: 200801, end: 201704
  82. BENADRYL [Concomitant]
     Active Substance: DIPHENHYDRAMINE HYDROCHLORIDE
  83. KEFLEX [Concomitant]
     Active Substance: CEPHALEXIN
  84. PRAVACHOL [Concomitant]
     Active Substance: PRAVASTATIN SODIUM
  85. PRECEDEX [Concomitant]
     Active Substance: DEXMEDETOMIDINE HYDROCHLORIDE
  86. PERCOCET [Concomitant]
     Active Substance: ACETAMINOPHEN\OXYCODONE HYDROCHLORIDE
  87. VERSED [Concomitant]
     Active Substance: MIDAZOLAM HYDROCHLORIDE
  88. LUNESTA [Concomitant]
     Active Substance: ESZOPICLONE
  89. HYDROCORTISONE ACETATE. [Concomitant]
     Active Substance: HYDROCORTISONE ACETATE
  90. LACTULOSE. [Concomitant]
     Active Substance: LACTULOSE
  91. GRANISETRON HYDROCHLORIDE. [Concomitant]
     Active Substance: GRANISETRON HYDROCHLORIDE
  92. CYMBALTA [Concomitant]
     Active Substance: DULOXETINE HYDROCHLORIDE
  93. FLUOCINOLONE ACETONIDE. [Concomitant]
     Active Substance: FLUOCINOLONE ACETONIDE
  94. TUBERCULIN NOS [Concomitant]
     Active Substance: TUBERCULIN PURIFIED PROTEIN DERIVATIVE
  95. AMLODIPINE BESYLATE. [Concomitant]
     Active Substance: AMLODIPINE BESYLATE
  96. POLYETHYLENE GLYCOL [Concomitant]
     Active Substance: POLYETHYLENE GLYCOLS
  97. CRESTOR [Concomitant]
     Active Substance: ROSUVASTATIN CALCIUM
  98. ALPRAZOLAM. [Concomitant]
     Active Substance: ALPRAZOLAM
  99. IBUPROFEN. [Concomitant]
     Active Substance: IBUPROFEN
  100. ATORVASTATIN [Concomitant]
     Active Substance: ATORVASTATIN
     Indication: BLOOD CHOLESTEROL ABNORMAL
     Dates: start: 2010
  101. VANCOMYCIN [Concomitant]
     Active Substance: VANCOMYCIN
     Indication: ANTIBIOTIC LEVEL
     Dates: start: 2014, end: 2015
  102. VERAMYST [Concomitant]
     Active Substance: FLUTICASONE FUROATE
  103. ACIPHEX [Concomitant]
     Active Substance: RABEPRAZOLE SODIUM

REACTIONS (8)
  - End stage renal disease [Unknown]
  - Chronic kidney disease [Not Recovered/Not Resolved]
  - Tubulointerstitial nephritis [Unknown]
  - Acute kidney injury [Not Recovered/Not Resolved]
  - Renal failure [Unknown]
  - Renal injury [Unknown]
  - Dyspepsia [Unknown]
  - Renal tubular necrosis [Unknown]
